FAERS Safety Report 4692258-9 (Version None)
Quarter: 2005Q2

REPORT INFORMATION
  Report Type: 
  Country: None (occurrence: None)
  Receive Date: 20050614
  Receipt Date: 20050603
  Transmission Date: 20051028
  Serious: Yes (Other)
  Sender: FDA-Public Use
  Company Number: 2005085337

PATIENT
  Age: 89 Year
  Sex: Female
  Weight: 42.5 kg

DRUGS (8)
  1. ALDACTONE [Suspect]
     Indication: OEDEMA DUE TO CARDIAC DISEASE
     Dosage: 25 MG, ORAL
     Route: 048
  2. TORSEMIDE [Suspect]
     Indication: OEDEMA DUE TO CARDIAC DISEASE
     Dosage: 4 MG, ORAL
  3. LASIX [Concomitant]
  4. AMLODIPINE [Concomitant]
  5. TAKEPRON (LANSOPRAZOLE) [Concomitant]
  6. AMOBAN (ZOPICLONE) [Concomitant]
  7. SOLANTAL (TIARAMIDE HYDROCHLORIDE) [Concomitant]
  8. METHYLCOBAL (MECOBALAMIN) [Concomitant]

REACTIONS (2)
  - BLOOD POTASSIUM INCREASED [None]
  - DRUG INTERACTION [None]
